FAERS Safety Report 18549143 (Version 1)
Quarter: 2020Q4

REPORT INFORMATION
  Report Type: Other
  Country: TH (occurrence: TH)
  Receive Date: 20201126
  Receipt Date: 20201126
  Transmission Date: 20210114
  Serious: Yes (Other)
  Sender: FDA-Public Use
  Company Number: TH-ROCHE-2714604

PATIENT
  Sex: Male

DRUGS (2)
  1. BEVACIZUMAB. [Suspect]
     Active Substance: BEVACIZUMAB
     Indication: HEPATOCELLULAR CARCINOMA
     Route: 065
     Dates: start: 20201110
  2. ATEZOLIZUMAB. [Suspect]
     Active Substance: ATEZOLIZUMAB
     Indication: HEPATOCELLULAR CARCINOMA
     Route: 065
     Dates: start: 20201110

REACTIONS (4)
  - Hypothyroidism [Unknown]
  - Hepatitis [Unknown]
  - Thrombocytopenia [Unknown]
  - Gingival bleeding [Unknown]
